FAERS Safety Report 25627587 (Version 1)
Quarter: 2025Q3

REPORT INFORMATION
  Report Type: Spontaneous
  Country: US (occurrence: US)
  Receive Date: 20250731
  Receipt Date: 20250731
  Transmission Date: 20251020
  Serious: Yes (Hospitalization)
  Sender: BAYER HEALTHCARE PHARMACEUTICALS INC.
  Company Number: US-BAYER-2025A097809

PATIENT
  Age: 59 Year
  Sex: Male

DRUGS (4)
  1. VITRAKVI [Suspect]
     Active Substance: LAROTRECTINIB
     Dosage: 100 MG, BID
     Route: 048
     Dates: start: 20250319, end: 2025
  2. VITRAKVI [Suspect]
     Active Substance: LAROTRECTINIB
     Dosage: 75 MG, BID
     Route: 048
     Dates: start: 2025
  3. LABETALOL [Concomitant]
     Active Substance: LABETALOL
     Indication: Hypertension
  4. PROCARDIA [Concomitant]
     Active Substance: NIFEDIPINE
     Indication: Hypertension

REACTIONS (1)
  - Hypertensive crisis [Recovered/Resolved]

NARRATIVE: CASE EVENT DATE: 20250714
